FAERS Safety Report 9268717 (Version 1)
Quarter: 2013Q2

REPORT INFORMATION
  Report Type: Spontaneous
  Country: US (occurrence: US)
  Receive Date: 20130502
  Receipt Date: 20130502
  Transmission Date: 20140414
  Serious: No
  Sender: FDA-Public Use
  Company Number: US-ALEXION-A201202442

PATIENT
  Sex: 0

DRUGS (3)
  1. SOLIRIS 300MG [Suspect]
     Indication: HAEMOLYTIC URAEMIC SYNDROME
     Dosage: UNK
     Route: 042
     Dates: start: 201211
  2. ZANTAC [Concomitant]
     Indication: PROPHYLAXIS
     Dosage: UNK
     Dates: start: 2008
  3. BLOOD PRESSURE PILLS [Concomitant]

REACTIONS (2)
  - Feeling cold [Unknown]
  - Abdominal pain upper [Unknown]
